FAERS Safety Report 9418059 (Version 1)
Quarter: 2013Q3

REPORT INFORMATION
  Report Type: Spontaneous
  Country: US (occurrence: US)
  Receive Date: 20130724
  Receipt Date: 20130724
  Transmission Date: 20140515
  Serious: No
  Sender: FDA-Public Use
  Company Number: US-009507513-1304USA004638

PATIENT
  Sex: Male
  Weight: 111.57 kg

DRUGS (2)
  1. MIRALAX [Suspect]
     Indication: CONSTIPATION
     Dosage: 51 G, QD
     Route: 048
     Dates: start: 201211
  2. MIRALAX [Suspect]
     Indication: MEDICAL OBSERVATION

REACTIONS (3)
  - Large intestine polyp [Unknown]
  - Overdose [Unknown]
  - Incorrect drug administration duration [Unknown]
